FAERS Safety Report 4751612-7 (Version None)
Quarter: 2005Q3

REPORT INFORMATION
  Report Type: 
  Country: None (occurrence: None)
  Receive Date: 20050824
  Receipt Date: 20050722
  Transmission Date: 20060218
  Serious: Yes (Other)
  Sender: FDA-Public Use
  Company Number: US-JNJFOC-20050704995

PATIENT
  Sex: Female
  Weight: 74.84 kg

DRUGS (3)
  1. TOPAMAX [Suspect]
     Route: 048
     Dates: start: 20050601
  2. TOPAMAX [Suspect]
     Indication: MIGRAINE
     Dosage: (TITRATED UP TO 50 MG)
     Route: 048
     Dates: start: 20050601
  3. ZOLOFT [Concomitant]

REACTIONS (5)
  - DIZZINESS [None]
  - HEADACHE [None]
  - LOSS OF CONSCIOUSNESS [None]
  - PARAESTHESIA [None]
  - PARAESTHESIA ORAL [None]
